FAERS Safety Report 21205972 (Version 1)
Quarter: 2022Q3

REPORT INFORMATION
  Report Type: Spontaneous
  Country: MY (occurrence: MY)
  Receive Date: 20220812
  Receipt Date: 20220812
  Transmission Date: 20221027
  Serious: Yes (Hospitalization, Other)
  Sender: FDA-Public Use
  Company Number: MY-Nexus Pharma-000126

PATIENT
  Age: 30 Year
  Sex: Male

DRUGS (1)
  1. TESTOSTERONE ENANTHATE [Suspect]
     Active Substance: TESTOSTERONE ENANTHATE
     Indication: Androgen therapy
     Route: 030

REACTIONS (1)
  - Anaplastic large-cell lymphoma [Unknown]
